FAERS Safety Report 8861950 (Version 4)
Quarter: 2012Q4

REPORT INFORMATION
  Report Type: 
  Country: US (occurrence: US)
  Receive Date: 20121025
  Receipt Date: 20121217
  Transmission Date: 20130627
  Serious: Yes (Other)
  Sender: FDA-Public Use
  Company Number: US-AMGEN-USASP2012067235

PATIENT
  Age: 72 Year
  Sex: Male
  Weight: 102.7 kg

DRUGS (8)
  1. PROCRIT [Suspect]
     Indication: NEPHROGENIC ANAEMIA
     Dosage: 20000 unit, qwk
     Route: 058
     Dates: start: 20120606, end: 20120926
  2. PRIVIGEN                           /00025201/ [Concomitant]
     Indication: APLASIA PURE RED CELL
     Dosage: UNK
     Dates: start: 20121025
  3. BENADRYL                           /00000402/ [Concomitant]
     Indication: PRODUCT USED FOR UNKNOWN INDICATION
     Dosage: 25 mg, prn
  4. DEMADEX                            /01036501/ [Concomitant]
     Indication: HYPERTENSION
     Dosage: 5 mg, bid
  5. DEMADEX                            /01036501/ [Concomitant]
     Indication: OEDEMA
  6. LOSARTAN [Concomitant]
     Indication: HYPERTENSION
     Dosage: 50 mg, bid
  7. FERROUS SULFATE [Concomitant]
     Indication: ANAEMIA
     Dosage: 325 mg, qd
  8. VITAMIN D3 [Concomitant]
     Indication: VITAMIN SUPPLEMENTATION
     Dosage: 460 unit, qd

REACTIONS (2)
  - Aplasia pure red cell [Unknown]
  - Drug ineffective [Unknown]
